FAERS Safety Report 19765902 (Version 2)
Quarter: 2021Q3

REPORT INFORMATION
  Report Type: Spontaneous
  Country: US (occurrence: US)
  Receive Date: 20210830
  Receipt Date: 20210903
  Transmission Date: 20211014
  Serious: Yes (Other)
  Sender: FDA-Public Use
  Company Number: US-PFIZER INC-202101075138

PATIENT
  Age: 92 Year
  Sex: Female

DRUGS (1)
  1. LATANOPROST. [Suspect]
     Active Substance: LATANOPROST
     Indication: INTRAOCULAR PRESSURE TEST ABNORMAL
     Dosage: UNK

REACTIONS (4)
  - Blindness unilateral [Unknown]
  - Product packaging quantity issue [Unknown]
  - Poor quality product administered [Unknown]
  - Pain [Unknown]

NARRATIVE: CASE EVENT DATE: 201912
